FAERS Safety Report 12282035 (Version 1)
Quarter: 2016Q2

REPORT INFORMATION
  Report Type: Spontaneous
  Country: US (occurrence: US)
  Receive Date: 20160419
  Receipt Date: 20160419
  Transmission Date: 20160815
  Serious: Yes (Other)
  Sender: FDA-Public Use
  Company Number: US-BAYER-2016-068282

PATIENT
  Age: 73 Year
  Sex: Female

DRUGS (1)
  1. PAIN STOPPER EXTRA [Suspect]
     Active Substance: ACETAMINOPHEN\ASPIRIN\CAFFEINE\SALICYLAMIDE
     Indication: ANALGESIC THERAPY
     Dosage: 2 DF, Q8HR
     Route: 048
     Dates: start: 2006

REACTIONS (3)
  - Hypertension [Not Recovered/Not Resolved]
  - Product use issue [Unknown]
  - Drug dependence [Unknown]

NARRATIVE: CASE EVENT DATE: 2006
